FAERS Safety Report 9877160 (Version 5)
Quarter: 2014Q1

REPORT INFORMATION
  Report Type: Spontaneous
  Country: US (occurrence: US)
  Receive Date: 20140206
  Receipt Date: 20140221
  Transmission Date: 20141002
  Serious: Yes (Death, Hospitalization)
  Sender: FDA-Public Use
  Company Number: US-JNJFOC-20140202585

PATIENT
  Age: 78 Year
  Sex: Female

DRUGS (1)
  1. XARELTO [Suspect]
     Indication: PRODUCT USED FOR UNKNOWN INDICATION
     Route: 048
     Dates: end: 201401

REACTIONS (4)
  - Gastrointestinal haemorrhage [Fatal]
  - Cardio-respiratory arrest [Fatal]
  - Chest pain [Unknown]
  - Haemoglobin decreased [Unknown]
